FAERS Safety Report 9395040 (Version 4)
Quarter: 2014Q2

REPORT INFORMATION
  Report Type: Report from Study
  Country: IE (occurrence: IE)
  Receive Date: 20130711
  Receipt Date: 20140609
  Transmission Date: 20141212
  Serious: Yes (Other)
  Sender: FDA-Public Use
  Company Number: IE-US-EMD SERONO, INC.-7222752

PATIENT
  Age: 33 Year
  Sex: Male

DRUGS (3)
  1. REBIF [Suspect]
     Indication: RELAPSING-REMITTING MULTIPLE SCLEROSIS
     Route: 058
     Dates: start: 20130611, end: 201404
  2. VENTOLIN                           /00139501/ [Concomitant]
     Indication: ASTHMA
     Dosage: 2 PUFFS
  3. SYMBICORT [Concomitant]
     Indication: ASTHMA

REACTIONS (2)
  - Lower respiratory tract infection [Recovered/Resolved]
  - Facial paresis [Recovered/Resolved]
